FAERS Safety Report 25061819 (Version 1)
Quarter: 2025Q1

REPORT INFORMATION
  Report Type: Spontaneous
  Country: HU (occurrence: HU)
  Receive Date: 20250311
  Receipt Date: 20250311
  Transmission Date: 20250409
  Serious: Yes (Life-Threatening, Other)
  Sender: CELLTRION
  Company Number: None

PATIENT

DRUGS (6)
  1. VEGZELMA [Suspect]
     Active Substance: BEVACIZUMAB-ADCD
     Indication: Rectosigmoid cancer metastatic
     Route: 042
     Dates: start: 20240708, end: 20240708
  2. CAPECITABINE [Concomitant]
     Active Substance: CAPECITABINE
     Indication: Rectosigmoid cancer metastatic
     Dates: start: 20240708
  3. ATROPINE SULFATE [Concomitant]
     Active Substance: ATROPINE SULFATE
     Indication: Premedication
     Dates: start: 20240708, end: 20240708
  4. DEXAMETHASONE KALCEKS [Concomitant]
     Indication: Premedication
     Dates: start: 20240708, end: 20240708
  5. ONDANSETRON HYDROCHLORIDE [Concomitant]
     Active Substance: ONDANSETRON HYDROCHLORIDE
     Indication: Premedication
     Dates: start: 20240708, end: 20240708
  6. IRINOTECAN [Concomitant]
     Active Substance: IRINOTECAN
     Indication: Premedication
     Dates: start: 20240708, end: 20240708

REACTIONS (1)
  - Peripheral artery occlusion [Recovered/Resolved with Sequelae]

NARRATIVE: CASE EVENT DATE: 20240709
